FAERS Safety Report 19819029 (Version 1)
Quarter: 2021Q3

REPORT INFORMATION
  Report Type: Spontaneous
  Country: US (occurrence: US)
  Receive Date: 20210912
  Receipt Date: 20210912
  Transmission Date: 20211014
  Serious: No
  Sender: FDA-Public Use
  Company Number: US-JNJFOC-20210903330

PATIENT
  Age: 79 Year
  Sex: Male
  Weight: 89.89 kg

DRUGS (1)
  1. DARZALEX FASPRO [Suspect]
     Active Substance: DARATUMUMAB\HYALURONIDASE-FIHJ
     Indication: PLASMA CELL MYELOMA
     Dosage: PATIENT HAS RECEIVED A TOTAL OF 6 DOSES ON DAY 1, 8, AND 15 OF EACH CYCLE
     Route: 058

REACTIONS (1)
  - Discomfort [Not Recovered/Not Resolved]
